FAERS Safety Report 7221222-0 (Version None)
Quarter: 2011Q1

REPORT INFORMATION
  Report Type: 
  Country: None (occurrence: None)
  Receive Date: 20110103
  Receipt Date: 20101220
  Transmission Date: 20110831
  Serious: Yes (Other)
  Sender: FDA-Public Use
  Company Number: 2010P1003589

PATIENT
  Age: 33 Year
  Sex: Female

DRUGS (2)
  1. DOXYCYCLINE [Suspect]
     Indication: VAGINAL INFECTION
     Dosage: 500 MG; BID
  2. ORNIDAZOLE (NO PREF. NAME) [Suspect]
     Indication: VAGINAL INFECTION
     Dosage: 500 MG; BID

REACTIONS (1)
  - PANCREATITIS ACUTE [None]
